FAERS Safety Report 10017596 (Version 1)
Quarter: 2014Q1

REPORT INFORMATION
  Report Type: Spontaneous
  Country: US (occurrence: US)
  Receive Date: 20140318
  Receipt Date: 20140318
  Transmission Date: 20141002
  Serious: Yes (Other)
  Sender: FDA-Public Use
  Company Number: US-BRISTOL-MYERS SQUIBB COMPANY-17378878

PATIENT
  Age: 84 Year
  Sex: Male

DRUGS (1)
  1. ERBITUX SOLN FOR INF [Suspect]
     Indication: HEAD AND NECK CANCER
     Dosage: 6 VIALS (4 UNOPENED; 2 OPENED FOR PATIENT).RESTART ERBITUX ON 15FEB2013
     Dates: start: 20130208

REACTIONS (2)
  - Hypersensitivity [Unknown]
  - Product deposit [Unknown]
